FAERS Safety Report 11103563 (Version 1)
Quarter: 2015Q2

REPORT INFORMATION
  Report Type: Spontaneous
  Country: IE (occurrence: None)
  Receive Date: 20150507
  Receipt Date: 20150507
  Transmission Date: 20150821
  Serious: Yes (Life-Threatening, Hospitalization)
  Sender: FDA-Public Use
  Company Number: COR_00287_2015

PATIENT
  Age: 42 Year
  Sex: Male

DRUGS (3)
  1. ETOPOSIDE (ETOPOSIDE) [Suspect]
     Active Substance: ETOPOSIDE
     Indication: GERM CELL CANCER METASTATIC
     Dosage: DAYS 1-5, 2 CYCLES AT 80% OF THE STANDARD DOSE
  2. CISPLATIN (CISPLATIN) [Suspect]
     Active Substance: CISPLATIN
     Indication: GERM CELL CANCER METASTATIC
     Dosage: DAYS 1-5, 2 CYCLES
  3. GRANULOCYTE COLONY STIMULATING FACTOR [Concomitant]
     Active Substance: GRANULOCYTE COLONY-STIMULATING FACTOR NOS

REACTIONS (8)
  - Enterococcal infection [None]
  - Skin ulcer [None]
  - Neutropenic sepsis [None]
  - Bone marrow failure [None]
  - Toxicity to various agents [None]
  - Acute kidney injury [None]
  - Drug effect incomplete [None]
  - Pancytopenia [None]
